FAERS Safety Report 4646570-X (Version None)
Quarter: 2005Q2

REPORT INFORMATION
  Report Type: 
  Country: None (occurrence: None)
  Receive Date: 20050427
  Receipt Date: 20041206
  Transmission Date: 20051028
  Serious: No
  Sender: FDA-Public Use
  Company Number: US-GLAXOSMITHKLINE-A0536502A

PATIENT
  Age: 93 Year

DRUGS (2)
  1. FLOVENT [Suspect]
     Dosage: 110MCG TWICE PER DAY
     Route: 055
     Dates: start: 20041202
  2. NEBULIZER [Concomitant]

REACTIONS (3)
  - DIZZINESS [None]
  - INCREASED UPPER AIRWAY SECRETION [None]
  - THROAT IRRITATION [None]
